FAERS Safety Report 11216699 (Version 1)
Quarter: 2015Q2

REPORT INFORMATION
  Report Type: Spontaneous
  Country: IT (occurrence: IT)
  Receive Date: 20150624
  Receipt Date: 20150624
  Transmission Date: 20150821
  Serious: Yes (Other)
  Sender: FDA-Public Use
  Company Number: IT-HOSPIRA-2603234

PATIENT
  Age: 64 Year
  Sex: Female

DRUGS (3)
  1. TRIMETON [Concomitant]
     Active Substance: CHLORPHENIRAMINE MALEATE
     Indication: PRODUCT USED FOR UNKNOWN INDICATION
     Route: 030
     Dates: start: 20101203, end: 20101203
  2. CARBOPLATIN. [Suspect]
     Active Substance: CARBOPLATIN
     Indication: OVARIAN NEOPLASM
     Route: 042
     Dates: start: 20101019, end: 20101203
  3. DEXAMETHASONE. [Concomitant]
     Active Substance: DEXAMETHASONE
     Indication: PRODUCT USED FOR UNKNOWN INDICATION
     Route: 042
     Dates: start: 20101203, end: 20101203

REACTIONS (3)
  - Erythema [Recovered/Resolved]
  - Rash generalised [Recovered/Resolved]
  - Pharyngeal oedema [Recovered/Resolved]

NARRATIVE: CASE EVENT DATE: 20101203
